FAERS Safety Report 15256818 (Version 1)
Quarter: 2018Q3

REPORT INFORMATION
  Report Type: Spontaneous
  Country: JP (occurrence: JP)
  Receive Date: 20180808
  Receipt Date: 20180808
  Transmission Date: 20181010
  Serious: Yes (Hospitalization, Other)
  Sender: FDA-Public Use
  Company Number: JP-BAYER-2018-074089

PATIENT
  Age: 73 Year
  Sex: Male
  Weight: 55 kg

DRUGS (13)
  1. XARELTO [Suspect]
     Active Substance: RIVAROXABAN
     Indication: EMBOLIC CEREBRAL INFARCTION
     Dosage: 15 MG, QD,MORNING ADMINISTRATION
     Route: 048
     Dates: start: 20180326, end: 20180328
  2. YOKUKAN?SAN [Concomitant]
     Active Substance: UNSPECIFIED INGREDIENT
     Indication: INSOMNIA
  3. XARELTO [Suspect]
     Active Substance: RIVAROXABAN
     Indication: CEREBROVASCULAR ACCIDENT PROPHYLAXIS
  4. BAYASPIRIN 100 MG [Suspect]
     Active Substance: ASPIRIN
     Indication: THROMBOTIC CEREBRAL INFARCTION
     Dosage: DAILY DOSE 100 MG
     Route: 048
     Dates: start: 20180316, end: 20180326
  5. LIPIDIL [Concomitant]
     Active Substance: FENOFIBRATE
     Indication: PRODUCT USED FOR UNKNOWN INDICATION
     Dosage: DAILY DOSE 80 MG
     Route: 048
     Dates: start: 20180310, end: 20180502
  6. XARELTO [Suspect]
     Active Substance: RIVAROXABAN
     Indication: ATRIAL FIBRILLATION
  7. XARELTO [Suspect]
     Active Substance: RIVAROXABAN
     Indication: THROMBOSIS PROPHYLAXIS
  8. AMLODIPINE [Concomitant]
     Active Substance: AMLODIPINE BESYLATE
     Indication: PRODUCT USED FOR UNKNOWN INDICATION
     Dosage: DAILY DOSE 2.5 MG
     Route: 048
     Dates: start: 20180310, end: 20180531
  9. TADALAFIL [Concomitant]
     Active Substance: TADALAFIL
     Indication: PRODUCT USED FOR UNKNOWN INDICATION
     Dosage: DAILY DOSE 5 MG
     Route: 048
     Dates: start: 20180310, end: 20180502
  10. URINORM [Concomitant]
     Active Substance: BENZBROMARONE
     Indication: PRODUCT USED FOR UNKNOWN INDICATION
     Dosage: DAILY DOSE 25MG
     Route: 048
     Dates: start: 20180310, end: 20180502
  11. YOKUKAN?SAN [Concomitant]
     Active Substance: UNSPECIFIED INGREDIENT
     Indication: IRRITABILITY
     Dosage: DAILY DOSE 7.5 G
     Route: 048
     Dates: start: 20180312, end: 20180401
  12. FLIVAS [Concomitant]
     Active Substance: NAFTOPIDIL
     Indication: PRODUCT USED FOR UNKNOWN INDICATION
     Dosage: DAILY DOSE 50 MG
     Route: 048
     Dates: start: 20180310, end: 20180502
  13. ROZEREM [Concomitant]
     Active Substance: RAMELTEON
     Indication: INSOMNIA
     Dosage: DAILY DOSE 8 MG
     Route: 048
     Dates: start: 20180312, end: 20180401

REACTIONS (19)
  - Headache [Not Recovered/Not Resolved]
  - Eating disorder [None]
  - Cerebellar infarction [None]
  - Atrial fibrillation [None]
  - Depressed level of consciousness [Not Recovered/Not Resolved]
  - Brain oedema [Recovering/Resolving]
  - Drug interaction [None]
  - Malignant glioma [Not Recovered/Not Resolved]
  - Intracranial tumour haemorrhage [Not Recovered/Not Resolved]
  - Labelled drug-drug interaction medication error [None]
  - Decreased activity [None]
  - Somnolence [Recovering/Resolving]
  - Intracranial pressure increased [Recovering/Resolving]
  - Loss of personal independence in daily activities [None]
  - Gastrostomy [None]
  - Atrial flutter [None]
  - Intracranial tumour haemorrhage [None]
  - Hemiplegia [None]
  - Vomiting [Not Recovered/Not Resolved]

NARRATIVE: CASE EVENT DATE: 2018
